FAERS Safety Report 7919779-7 (Version None)
Quarter: 2011Q4

REPORT INFORMATION
  Report Type: 
  Country: None (occurrence: None)
  Receive Date: 20111117
  Receipt Date: 20111117
  Transmission Date: 20120403
  Serious: Yes (Other)
  Sender: FDA-Public Use
  Company Number: None

PATIENT

DRUGS (2)
  1. FENTANYL [Concomitant]
  2. ROPIVACAINE HYDROCHLORIDE [Suspect]
     Indication: LABOUR PAIN
     Dosage: 100 ML
     Route: 008
     Dates: start: 20111022, end: 20111023

REACTIONS (5)
  - CAESAREAN SECTION [None]
  - MATERNAL EXPOSURE DURING PREGNANCY [None]
  - MUSCULOSKELETAL PAIN [None]
  - INADEQUATE ANALGESIA [None]
  - PRODUCT MEASURED POTENCY ISSUE [None]
